FAERS Safety Report 6530936-7 (Version None)
Quarter: 2010Q1

REPORT INFORMATION
  Report Type: 
  Country: None (occurrence: None)
  Receive Date: 20100108
  Receipt Date: 20090618
  Transmission Date: 20100710
  Serious: No
  Sender: FDA-Public Use
  Company Number: A0792264A

PATIENT
  Sex: Male

DRUGS (5)
  1. LOVAZA [Suspect]
     Indication: BLOOD CHOLESTEROL INCREASED
     Dosage: 1G TWICE PER DAY
     Route: 048
     Dates: start: 20090528
  2. SIMCOR [Concomitant]
  3. UNKNOWN MEDICATION [Concomitant]
  4. NORVASC [Concomitant]
  5. ASPIRIN [Concomitant]

REACTIONS (1)
  - FOREIGN BODY [None]
